FAERS Safety Report 4678514-9 (Version None)
Quarter: 2005Q2

REPORT INFORMATION
  Report Type: 
  Country: None (occurrence: None)
  Receive Date: 20050601
  Receipt Date: 20050517
  Transmission Date: 20051028
  Serious: Yes (Other)
  Sender: FDA-Public Use
  Company Number: GB-JNJFOC-20050506609

PATIENT
  Age: 11 Year
  Sex: Male

DRUGS (1)
  1. OVEX [Suspect]
     Indication: DRUG USE FOR UNKNOWN INDICATION
     Route: 063

REACTIONS (2)
  - DRUG EXPOSURE VIA BREAST MILK [None]
  - RETINAL VASCULAR DISORDER [None]
